FAERS Safety Report 18429392 (Version 1)
Quarter: 2020Q4

REPORT INFORMATION
  Report Type: Spontaneous
  Country: ES (occurrence: ES)
  Receive Date: 20201027
  Receipt Date: 20201027
  Transmission Date: 20210114
  Serious: Yes (Life-Threatening, Hospitalization, Other)
  Sender: FDA-Public Use
  Company Number: ES-AUROBINDO-AUR-APL-2020-053593

PATIENT
  Age: 54 Year
  Sex: Male

DRUGS (6)
  1. NAPROXEN SODIUM. [Suspect]
     Active Substance: NAPROXEN SODIUM
     Indication: ANALGESIC THERAPY
     Dosage: 550 MILLIGRAM, TWO TIMES A DAY
     Route: 048
     Dates: start: 20200523, end: 20200525
  2. THERVAN [Interacting]
     Active Substance: ATORVASTATIN CALCIUM
     Indication: DYSLIPIDAEMIA
     Dosage: 40 MILLIGRAM, ONCE A DAY
     Route: 048
     Dates: start: 20190522
  3. OLANZAPINE. [Interacting]
     Active Substance: OLANZAPINE
     Indication: SCHIZOPHRENIA
     Dosage: 15 MILLIGRAM, ONCE A DAY
     Route: 048
     Dates: start: 20190514
  4. PALIPERIDONE. [Concomitant]
     Active Substance: PALIPERIDONE
     Indication: SCHIZOPHRENIA
     Dosage: 150 MILLIGRAM, 1 MONTH
     Route: 030
     Dates: start: 20190514, end: 20200514
  5. PALIPERIDONE. [Interacting]
     Active Substance: PALIPERIDONE
     Indication: SCHIZOPHRENIA
     Dosage: 9 MILLIGRAM, ONCE A DAY
     Route: 048
     Dates: start: 20190514, end: 20200525
  6. HYDROCHLOROTHIAZIDE;LISINOPRIL [Interacting]
     Active Substance: HYDROCHLOROTHIAZIDE\LISINOPRIL
     Indication: HYPERTENSION
     Dosage: 1 DOSAGE FORM, ONCE A DAY
     Route: 048
     Dates: start: 20190522

REACTIONS (2)
  - Acute kidney injury [Recovered/Resolved]
  - Dizziness [Recovered/Resolved]

NARRATIVE: CASE EVENT DATE: 20200525
